FAERS Safety Report 17289000 (Version 5)
Quarter: 2020Q3

REPORT INFORMATION
  Report Type: Spontaneous
  Country: US (occurrence: US)
  Receive Date: 20200120
  Receipt Date: 20200911
  Transmission Date: 20201102
  Serious: Yes (Other)
  Sender: FDA-Public Use
  Company Number: US-TEVA-2020-US-1170557

PATIENT
  Age: 78 Year
  Sex: Female
  Weight: 58.5 kg

DRUGS (17)
  1. GOCOVRI [Suspect]
     Active Substance: AMANTADINE
     Indication: DYSKINESIA
     Dosage: 274 MILLIGRAM DAILY; AT BEDTIME
     Route: 048
     Dates: start: 20191218
  2. GOCOVRI [Suspect]
     Active Substance: AMANTADINE
     Dosage: 274 MG, 1X/DAY AT (CONTINUED)
     Route: 048
     Dates: start: 20180326, end: 201804
  3. GOCOVRI [Suspect]
     Active Substance: AMANTADINE
     Indication: PARKINSON^S DISEASE
     Dosage: 137 MILLIGRAM DAILY; AT BEDTIME
     Route: 048
     Dates: start: 20180326, end: 201804
  4. CARBIDOPA/LEVODOPA [Concomitant]
     Active Substance: CARBIDOPA\LEVODOPA
     Route: 065
  5. MIRAPEX [Concomitant]
     Active Substance: PRAMIPEXOLE DIHYDROCHLORIDE
     Route: 065
     Dates: end: 201910
  6. PANTOPRAZOLE [Concomitant]
     Active Substance: PANTOPRAZOLE
     Route: 065
  7. RASAGILINE. [Suspect]
     Active Substance: RASAGILINE
     Route: 065
     Dates: end: 202004
  8. GOCOVRI [Suspect]
     Active Substance: AMANTADINE
     Dosage: 137 MILLIGRAM DAILY; AT BEDTIME
     Route: 048
     Dates: start: 201804
  9. GOCOVRI [Suspect]
     Active Substance: AMANTADINE
     Dosage: 68.5 MILLIGRAM DAILY; IN THE MORNING
     Route: 048
     Dates: start: 2020
  10. GOCOVRI [Suspect]
     Active Substance: AMANTADINE
     Dosage: 137 MILLIGRAM DAILY; AT BED TIME
     Route: 048
     Dates: start: 2020, end: 2020
  11. LECITHIN [Concomitant]
     Active Substance: LECITHIN
     Route: 065
  12. MIRAPEX [Concomitant]
     Active Substance: PRAMIPEXOLE DIHYDROCHLORIDE
     Dosage: 6 MILLIGRAM DAILY;
     Route: 065
     Dates: start: 2019
  13. COQ10 [Concomitant]
     Active Substance: UBIDECARENONE
     Route: 065
  14. RASAGILINE. [Suspect]
     Active Substance: RASAGILINE
     Route: 065
     Dates: end: 201911
  15. GOCOVRI [Suspect]
     Active Substance: AMANTADINE
     Dosage: 137 MILLIGRAM DAILY; AT BED TIME
     Route: 065
     Dates: end: 2020
  16. GOCOVRI [Suspect]
     Active Substance: AMANTADINE
     Dosage: 137 MILLIGRAM DAILY; AT BED TIME
     Route: 048
     Dates: start: 2020
  17. MIRAPEX [Concomitant]
     Active Substance: PRAMIPEXOLE DIHYDROCHLORIDE
     Dosage: 6 MILLIGRAM DAILY; EXTENDED RELEASE
     Route: 065
     Dates: start: 201910, end: 2019

REACTIONS (6)
  - Dry mouth [Recovering/Resolving]
  - Skin discolouration [Unknown]
  - Therapeutic product effect incomplete [Unknown]
  - Blood pressure increased [Recovering/Resolving]
  - Tremor [Unknown]
  - Paraesthesia [Unknown]

NARRATIVE: CASE EVENT DATE: 201803
